FAERS Safety Report 24307981 (Version 2)
Quarter: 2025Q1

REPORT INFORMATION
  Report Type: Report from Study
  Country: US (occurrence: US)
  Receive Date: 20240911
  Receipt Date: 20250314
  Transmission Date: 20250409
  Serious: No
  Sender: SUNOVION
  Company Number: US-SUMITOMO PHARMA SWITZERLAND GMBH-2024SPA001552

PATIENT

DRUGS (4)
  1. ORGOVYX [Suspect]
     Active Substance: RELUGOLIX
     Indication: Prostate cancer
     Dosage: 360 MG, SINGLE
     Route: 048
     Dates: start: 20240731, end: 20240731
  2. ORGOVYX [Suspect]
     Active Substance: RELUGOLIX
     Dosage: 120 MG, QD
     Route: 048
     Dates: start: 20240801
  3. ABIRATERONE [Suspect]
     Active Substance: ABIRATERONE
     Route: 065
  4. PREDNISONE [Suspect]
     Active Substance: PREDNISONE

REACTIONS (8)
  - Prostatic specific antigen increased [Unknown]
  - Adverse event [Unknown]
  - Muscle spasms [Unknown]
  - Blood pressure fluctuation [Unknown]
  - Dizziness [Unknown]
  - Musculoskeletal stiffness [Unknown]
  - Hot flush [Unknown]
  - Haemoglobin decreased [Unknown]

NARRATIVE: CASE EVENT DATE: 20240101
